FAERS Safety Report 16540795 (Version 1)
Quarter: 2019Q3

REPORT INFORMATION
  Report Type: Report from Study
  Country: US (occurrence: US)
  Receive Date: 20190708
  Receipt Date: 20190708
  Transmission Date: 20191004
  Serious: Yes (Death, Hospitalization, Other)
  Sender: FDA-Public Use
  Company Number: US-BRISTOL-MYERS SQUIBB COMPANY-BMS-2019-065817

PATIENT
  Age: 66 Year
  Sex: Female

DRUGS (4)
  1. NKTR-214 [Suspect]
     Active Substance: BEMPEGALDESLEUKIN
     Indication: CHONDROSARCOMA
     Dosage: UNK
     Route: 065
     Dates: start: 20171107, end: 20190416
  2. IFOSFAMIDE. [Suspect]
     Active Substance: IFOSFAMIDE
     Indication: CHONDROSARCOMA
     Dosage: UNK
     Route: 065
     Dates: start: 20190607, end: 20190609
  3. ETOPOSIDE. [Suspect]
     Active Substance: ETOPOSIDE
     Indication: CHONDROSARCOMA
     Dosage: UNK
     Route: 065
     Dates: start: 20190607, end: 20190609
  4. NIVOLUMAB [Suspect]
     Active Substance: NIVOLUMAB
     Indication: CHONDROSARCOMA
     Dosage: UNK
     Route: 065
     Dates: start: 20171107, end: 20190416

REACTIONS (5)
  - Anaemia [Unknown]
  - Pulmonary embolism [Unknown]
  - Malignant neoplasm progression [Unknown]
  - Death [Fatal]
  - Sepsis [Unknown]

NARRATIVE: CASE EVENT DATE: 20190528
